FAERS Safety Report 4912679-6 (Version None)
Quarter: 2006Q1

REPORT INFORMATION
  Report Type: 
  Country: None (occurrence: None)
  Receive Date: 20060215
  Receipt Date: 20050421
  Transmission Date: 20060701
  Serious: Yes (Other)
  Sender: FDA-Public Use
  Company Number: US-MERCK-0504USA04287

PATIENT
  Age: 54 Year
  Sex: Male
  Weight: 91 kg

DRUGS (12)
  1. VIOXX [Suspect]
     Indication: PAIN
     Route: 048
     Dates: end: 20020118
  2. VIOXX [Suspect]
     Route: 048
     Dates: start: 20020118
  3. VIOXX [Suspect]
     Route: 065
     Dates: start: 19990101
  4. VIOXX [Suspect]
     Route: 065
     Dates: end: 20030101
  5. ATENOLOL [Concomitant]
     Indication: CARDIAC DISORDER
     Route: 065
  6. VASOTEC RPD [Concomitant]
     Indication: CARDIAC DISORDER
     Route: 048
     Dates: end: 20040101
  7. ASPIRIN [Concomitant]
     Route: 065
  8. VITAMIN E [Concomitant]
     Route: 065
  9. VANCERIL [Concomitant]
     Route: 065
  10. ALBUTEROL [Concomitant]
     Route: 065
  11. COZAAR [Concomitant]
     Indication: CARDIAC DISORDER
     Route: 048
     Dates: end: 20040101
  12. ZOCOR [Concomitant]
     Indication: BLOOD CHOLESTEROL
     Route: 048

REACTIONS (7)
  - CHEST DISCOMFORT [None]
  - CORONARY ARTERY DISEASE [None]
  - HEAD INJURY [None]
  - HERNIA [None]
  - INJURY [None]
  - MYOCARDIAL INFARCTION [None]
  - NON-CARDIAC CHEST PAIN [None]
